FAERS Safety Report 26130492 (Version 1)
Quarter: 2025Q4

REPORT INFORMATION
  Report Type: Spontaneous
  Country: RS (occurrence: RS)
  Receive Date: 20251208
  Receipt Date: 20251208
  Transmission Date: 20260118
  Serious: Yes (Death, Other)
  Sender: AMGEN
  Company Number: RS-AMGEN-SRBSP2025238421

PATIENT
  Age: 64 Year
  Sex: Female

DRUGS (8)
  1. NPLATE [Suspect]
     Active Substance: ROMIPLOSTIM
     Indication: Immune thrombocytopenia
     Dosage: 3 MICROGRAM/KILOGRAM
     Route: 040
     Dates: start: 20200601, end: 2021
  2. CYCLOPHOSPHAMIDE ANHYDROUS [Concomitant]
     Active Substance: CYCLOPHOSPHAMIDE ANHYDROUS
     Dosage: 100 MILLIGRAM
     Route: 065
  3. AZATHIOPRINE [Concomitant]
     Active Substance: AZATHIOPRINE
     Dosage: 50 MILLIGRAM, BID
     Route: 065
  4. METHYLPREDNISOLONE [Concomitant]
     Active Substance: METHYLPREDNISOLONE
     Dosage: 1.5 MILLIGRAM
     Route: 065
  5. Vinblastine comp [Concomitant]
     Dosage: 8 MG/DL
     Route: 065
  6. ELTROMBOPAG [Concomitant]
     Active Substance: ELTROMBOPAG
     Dosage: 50 MILLIGRAM
     Route: 048
  7. DEXAMETHASONE [Concomitant]
     Active Substance: DEXAMETHASONE
     Dosage: UNK
     Route: 065
  8. Romiplostim N01 [Concomitant]
     Dosage: 3 MICROGRAM/KILOGRAM
     Route: 058

REACTIONS (6)
  - Mucocutaneous haemorrhage [Fatal]
  - Rectal haemorrhage [Unknown]
  - Cataract [Unknown]
  - Cerebral haemorrhage [Unknown]
  - Therapy partial responder [Unknown]
  - Somnolence [Unknown]

NARRATIVE: CASE EVENT DATE: 20210101
